FAERS Safety Report 13641997 (Version 2)
Quarter: 2017Q2

REPORT INFORMATION
  Report Type: Spontaneous
  Country: JP (occurrence: JP)
  Receive Date: 20170612
  Receipt Date: 20170623
  Transmission Date: 20170830
  Serious: Yes (Other)
  Sender: FDA-Public Use
  Company Number: JP-ROCHE-1949065

PATIENT
  Age: 8 Decade
  Sex: Female

DRUGS (1)
  1. BONVIVA [Suspect]
     Active Substance: IBANDRONATE SODIUM
     Indication: OSTEOPOROSIS
     Route: 042
     Dates: start: 20170530

REACTIONS (3)
  - Administration site swelling [Not Recovered/Not Resolved]
  - Administration site warmth [Unknown]
  - Administration site erythema [Recovering/Resolving]

NARRATIVE: CASE EVENT DATE: 20170530
